FAERS Safety Report 17025158 (Version 4)
Quarter: 2020Q2

REPORT INFORMATION
  Report Type: Report from Study
  Country: IT (occurrence: IT)
  Receive Date: 20191113
  Receipt Date: 20200506
  Transmission Date: 20200713
  Serious: Yes (Hospitalization)
  Sender: FDA-Public Use
  Company Number: IT-PFIZER INC-2019487956

PATIENT
  Age: 11 Year
  Sex: Female
  Weight: 57 kg

DRUGS (6)
  1. KETOPROFEN. [Concomitant]
     Active Substance: KETOPROFEN
     Dosage: UNK
  2. DEPAKIN [Suspect]
     Active Substance: VALPROATE SODIUM
     Indication: PARTIAL SEIZURES
     Dosage: 1000 MG, 1X/DAY
     Route: 048
     Dates: start: 20190919, end: 20190926
  3. DINTOINA [Suspect]
     Active Substance: PHENYTOIN SODIUM
     Indication: PARTIAL SEIZURES
     Dosage: 150 MG, 1X/DAY
     Route: 048
     Dates: start: 20190101, end: 20190926
  4. ZARONTIN [Suspect]
     Active Substance: ETHOSUXIMIDE
     Dosage: 1 G, 1X/DAY
     Route: 048
  5. TOPAMAX [Suspect]
     Active Substance: TOPIRAMATE
     Indication: PARTIAL SEIZURES
     Dosage: 200 MG, 1X/DAY
     Route: 048
     Dates: start: 20190101, end: 20190926
  6. FRISIUM [Concomitant]
     Active Substance: CLOBAZAM
     Dosage: 20 MG, 1X/DAY

REACTIONS (2)
  - Seizure [Unknown]
  - Drug ineffective [Unknown]

NARRATIVE: CASE EVENT DATE: 20190926
